FAERS Safety Report 9875876 (Version 2)
Quarter: 2014Q1

REPORT INFORMATION
  Report Type: Other
  Country: US (occurrence: US)
  Receive Date: 20140206
  Receipt Date: 20140206
  Transmission Date: 20141002
  Serious: No
  Sender: FDA-Public Use
  Company Number: US-ACORDA-ACO_36331_2013

PATIENT
  Sex: Female

DRUGS (4)
  1. AMPYRA [Suspect]
     Indication: GAIT DISTURBANCE
     Dosage: 10 MG, BID
     Route: 048
     Dates: start: 2012
  2. AMPYRA [Suspect]
     Dosage: 10 MG, BID
     Route: 048
     Dates: start: 20130510, end: 20130516
  3. GILENYA [Concomitant]
     Indication: MULTIPLE SCLEROSIS
     Dosage: 0.5 MG, QD
     Route: 048
  4. BACLOFEN [Concomitant]
     Indication: MULTIPLE SCLEROSIS
     Dosage: 15 MG, TID
     Route: 048

REACTIONS (1)
  - Dizziness [Recovered/Resolved]
